FAERS Safety Report 21767586 (Version 2)
Quarter: 2022Q4

REPORT INFORMATION
  Report Type: Report from Study
  Country: TW (occurrence: TW)
  Receive Date: 20221222
  Receipt Date: 20221230
  Transmission Date: 20230112
  Serious: Yes (Other)
  Sender: FDA-Public Use
  Company Number: TW-TAKEDA-2022TUS098197

PATIENT
  Sex: Male
  Weight: 88 kg

DRUGS (6)
  1. ANTIHEMOPHILIC FACTOR, PEGYLATED (MW 20000) HUMAN SEQUENCE RECOMBINANT [Suspect]
     Active Substance: ANTIHEMOPHILIC FACTOR, PEGYLATED (MW 20000) HUMAN SEQUENCE RECOMBINANT
     Indication: Factor VIII deficiency
     Dosage: 2000 INTERNATIONAL UNIT
     Route: 065
  2. ANTIHEMOPHILIC FACTOR, PEGYLATED (MW 20000) HUMAN SEQUENCE RECOMBINANT [Suspect]
     Active Substance: ANTIHEMOPHILIC FACTOR, PEGYLATED (MW 20000) HUMAN SEQUENCE RECOMBINANT
     Indication: Factor VIII deficiency
     Dosage: 2000 INTERNATIONAL UNIT
     Route: 065
  3. ANTIHEMOPHILIC FACTOR, PEGYLATED (MW 20000) HUMAN SEQUENCE RECOMBINANT [Suspect]
     Active Substance: ANTIHEMOPHILIC FACTOR, PEGYLATED (MW 20000) HUMAN SEQUENCE RECOMBINANT
     Indication: Factor VIII deficiency
     Dosage: 2000 INTERNATIONAL UNIT
     Route: 065
  4. ANTIHEMOPHILIC FACTOR, PEGYLATED (MW 20000) HUMAN SEQUENCE RECOMBINANT [Suspect]
     Active Substance: ANTIHEMOPHILIC FACTOR, PEGYLATED (MW 20000) HUMAN SEQUENCE RECOMBINANT
     Dosage: 4000 INTERNATIONAL UNIT
     Route: 065
  5. ANTIHEMOPHILIC FACTOR, PEGYLATED (MW 20000) HUMAN SEQUENCE RECOMBINANT [Suspect]
     Active Substance: ANTIHEMOPHILIC FACTOR, PEGYLATED (MW 20000) HUMAN SEQUENCE RECOMBINANT
     Dosage: 4000 INTERNATIONAL UNIT
     Route: 065
  6. ANTIHEMOPHILIC FACTOR, PEGYLATED (MW 20000) HUMAN SEQUENCE RECOMBINANT [Suspect]
     Active Substance: ANTIHEMOPHILIC FACTOR, PEGYLATED (MW 20000) HUMAN SEQUENCE RECOMBINANT
     Dosage: 4000 INTERNATIONAL UNIT
     Route: 065

REACTIONS (2)
  - Spontaneous haemorrhage [Recovered/Resolved]
  - Haemarthrosis [Recovered/Resolved]

NARRATIVE: CASE EVENT DATE: 20221202
